FAERS Safety Report 7812330-1 (Version None)
Quarter: 2011Q4

REPORT INFORMATION
  Report Type: 
  Country: None (occurrence: None)
  Receive Date: 20111013
  Receipt Date: 20111006
  Transmission Date: 20120403
  Serious: Yes (Hospitalization)
  Sender: FDA-Public Use
  Company Number: US-GLAXOSMITHKLINE-A0834570A

PATIENT
  Age: 70 Year
  Sex: Male

DRUGS (5)
  1. COREG CR [Suspect]
     Indication: HYPERTENSION
     Route: 048
     Dates: start: 20060101
  2. NEORAL [Concomitant]
  3. CARVEDILOL [Suspect]
     Indication: HYPERTENSION
     Dosage: 6.5MG TWICE PER DAY
     Route: 048
     Dates: start: 19970101, end: 19970101
  4. AVAPRO [Concomitant]
  5. MYCOPHENOLATE MOFETIL (CELLCEPT) [Concomitant]

REACTIONS (3)
  - HERNIA REPAIR [None]
  - DRUG INEFFECTIVE [None]
  - ANXIETY [None]
